FAERS Safety Report 14255514 (Version 1)
Quarter: 2017Q4

REPORT INFORMATION
  Report Type: Spontaneous
  Country: US (occurrence: US)
  Receive Date: 20171206
  Receipt Date: 20171206
  Transmission Date: 20180321
  Serious: No
  Sender: FDA-Public Use
  Company Number: US-009507513-1711USA002352

PATIENT
  Sex: Female

DRUGS (4)
  1. ZOCOR [Concomitant]
     Active Substance: SIMVASTATIN
     Dosage: UNK
     Route: 048
  2. ELOCOM [Suspect]
     Active Substance: MOMETASONE FUROATE
     Indication: PRURITUS
     Dosage: UNK
     Route: 061
     Dates: start: 2017, end: 2017
  3. ELOCOM [Concomitant]
     Active Substance: MOMETASONE FUROATE
     Indication: PRURITUS
     Dosage: UNK
     Dates: start: 2017, end: 2017
  4. MOMETASONE FUROATE. [Suspect]
     Active Substance: MOMETASONE FUROATE
     Indication: PRURITUS
     Dosage: UNK
     Dates: start: 2017, end: 2017

REACTIONS (2)
  - Product availability issue [Unknown]
  - Drug ineffective [Not Recovered/Not Resolved]

NARRATIVE: CASE EVENT DATE: 2017
